FAERS Safety Report 6745828-8 (Version None)
Quarter: 2010Q2

REPORT INFORMATION
  Report Type: 
  Country: None (occurrence: None)
  Receive Date: 20100528
  Receipt Date: 20100517
  Transmission Date: 20101027
  Serious: Yes (Hospitalization, Other)
  Sender: FDA-Public Use
  Company Number: AE-BRISTOL-MYERS SQUIBB COMPANY-15107600

PATIENT
  Age: 14 Year
  Sex: Male

DRUGS (5)
  1. CARBOPLATIN [Suspect]
     Indication: MEDULLOBLASTOMA
     Dosage: CARBOPLATIN 560 MG/M SUP(2) ON DAY 1
  2. CYCLOPHOSPHAMIDE [Suspect]
     Indication: MEDULLOBLASTOMA
     Dosage: CYCLOPHOSPHAMIDE 1000 MG/M SUP(2)/DAY ON DAYS 2 AND 3.
  3. VINCRISTINE SULFATE [Suspect]
     Indication: MEDULLOBLASTOMA
     Dosage: 1 DF - 1.5MG/M SUP(2)
  4. MESNA [Suspect]
  5. RADIOTHERAPY [Suspect]

REACTIONS (2)
  - DEAFNESS [None]
  - VENOOCCLUSIVE LIVER DISEASE [None]
